FAERS Safety Report 25734082 (Version 2)
Quarter: 2025Q3

REPORT INFORMATION
  Report Type: Spontaneous
  Country: GB (occurrence: GB)
  Receive Date: 20250828
  Receipt Date: 20250923
  Transmission Date: 20251020
  Serious: Yes (Other)
  Sender: MICRO LABS
  Company Number: None

PATIENT
  Age: 89 Year
  Sex: Female
  Weight: 57 kg

DRUGS (1)
  1. METHENAMINE [Suspect]
     Active Substance: METHENAMINE
     Indication: Urinary tract infection
     Dates: start: 20250813, end: 20250815

REACTIONS (2)
  - Diarrhoea [Recovered/Resolved]
  - Abdominal pain [Recovered/Resolved]

NARRATIVE: CASE EVENT DATE: 20250815
